FAERS Safety Report 5332520-X (Version None)
Quarter: 2007Q2

REPORT INFORMATION
  Report Type: 
  Country: None (occurrence: None)
  Receive Date: 20070518
  Receipt Date: 20070510
  Transmission Date: 20071010
  Serious: Yes (Hospitalization)
  Sender: FDA-Public Use
  Company Number: THQ2007A00374

PATIENT
  Age: 67 Year
  Sex: Female

DRUGS (8)
  1. LANSOPRAZOLE [Suspect]
     Dosage: 40 MG (40 MG, 1 IN 1 D)
     Route: 048
  2. DI-ANTALVIC (APOREX) (CAPSULES) [Suspect]
     Dosage: 4 UT (4 UT, 1 IN 1 D)
     Route: 048
  3. VOLTAREN [Suspect]
     Route: 048
  4. ISRADIPINE [Concomitant]
  5. PROPRANOLOL [Concomitant]
  6. ART 50 (DIACEREIN) (CAPSULES) [Concomitant]
  7. PANOS (TETRAZEPAM) (TABLETS) [Concomitant]
  8. MYOLASTAN (TETRAZEPAM) (TABLETS) [Concomitant]

REACTIONS (2)
  - GUILLAIN-BARRE SYNDROME [None]
  - PERIPHERAL SENSORY NEUROPATHY [None]
